FAERS Safety Report 5976708-3 (Version None)
Quarter: 2008Q4

REPORT INFORMATION
  Report Type: 
  Country: None (occurrence: None)
  Receive Date: 20081201
  Receipt Date: 20081201
  Transmission Date: 20090506
  Serious: No
  Sender: FDA-Public Use
  Company Number: None

PATIENT
  Age: 88 Year
  Sex: Female

DRUGS (1)
  1. LAMISIL [Suspect]

REACTIONS (3)
  - AGEUSIA [None]
  - DYSGEUSIA [None]
  - HYPOPHAGIA [None]
